FAERS Safety Report 7564259-4 (Version None)
Quarter: 2011Q2

REPORT INFORMATION
  Report Type: 
  Country: None (occurrence: None)
  Receive Date: 20110622
  Receipt Date: 20110609
  Transmission Date: 20111010
  Serious: Yes (Hospitalization)
  Sender: FDA-Public Use
  Company Number: PHHY2010DE82891

PATIENT
  Sex: Female

DRUGS (8)
  1. TASIGNA [Suspect]
     Dosage: 800 MG, QD
     Route: 048
     Dates: start: 20100202, end: 20100210
  2. PREDNISONE [Concomitant]
     Indication: COMPUTERISED TOMOGRAM ABNORMAL
  3. TAVEGIL [Concomitant]
     Indication: COMPUTERISED TOMOGRAM ABNORMAL
  4. IRENAT [Concomitant]
     Indication: COMPUTERISED TOMOGRAM ABNORMAL
  5. TASIGNA [Suspect]
     Dosage: 800 MG, QD
     Route: 048
     Dates: start: 20100223, end: 20100302
  6. RANITIC [Concomitant]
     Indication: COMPUTERISED TOMOGRAM ABNORMAL
  7. TASIGNA [Suspect]
     Dosage: 200 MG ONCE PER WEEK
     Dates: start: 20100913, end: 20101025
  8. TASIGNA [Suspect]
     Dosage: UNK
     Route: 048
     Dates: start: 20101026

REACTIONS (7)
  - CARDIAC FAILURE [None]
  - BRONCHOPNEUMONIA [None]
  - LUNG INFILTRATION [None]
  - PALPITATIONS [None]
  - THROMBOCYTOPENIA [None]
  - PANCYTOPENIA [None]
  - PNEUMONIA [None]
